FAERS Safety Report 7496359-1 (Version None)
Quarter: 2011Q2

REPORT INFORMATION
  Report Type: 
  Country: None (occurrence: None)
  Receive Date: 20110513
  Receipt Date: 20110509
  Transmission Date: 20111010
  Serious: Yes (Hospitalization, Other)
  Sender: FDA-Public Use
  Company Number: 2010SP052983

PATIENT
  Age: 27 Year
  Sex: Female
  Weight: 81.6475 kg

DRUGS (2)
  1. NUVARING [Suspect]
     Indication: CONTRACEPTION
     Dosage: VAG
     Route: 067
     Dates: start: 20061201, end: 20081001
  2. SYNTHROID [Concomitant]

REACTIONS (21)
  - GASTROINTESTINAL DISORDER [None]
  - CARDIOVASCULAR DISORDER [None]
  - ARTHROFIBROSIS [None]
  - HEADACHE [None]
  - ANXIETY [None]
  - LIGAMENT RUPTURE [None]
  - PAIN IN EXTREMITY [None]
  - STRESS [None]
  - PHLEBITIS [None]
  - FALL [None]
  - MENISCUS LESION [None]
  - DEEP VEIN THROMBOSIS [None]
  - CHEST PAIN [None]
  - ANAL FISSURE [None]
  - PULMONARY EMBOLISM [None]
  - CERVICAL DYSPLASIA [None]
  - SKIN LESION [None]
  - MELANOCYTIC NAEVUS [None]
  - JOINT INJURY [None]
  - SWELLING [None]
  - JOINT DISLOCATION [None]
